FAERS Safety Report 20444585 (Version 1)
Quarter: 2022Q1

REPORT INFORMATION
  Report Type: Spontaneous
  Country: US (occurrence: None)
  Receive Date: 20220207
  Receipt Date: 20220207
  Transmission Date: 20220424
  Serious: Yes (Other)
  Sender: FDA-Public Use
  Company Number: None

PATIENT

DRUGS (2)
  1. BUPIVACAINE SPINAL [Suspect]
     Active Substance: BUPIVACAINE HYDROCHLORIDE
     Indication: Spinal anaesthesia
     Route: 037
  2. BUPIVACAINE SPINAL [Suspect]
     Active Substance: BUPIVACAINE HYDROCHLORIDE
     Indication: Caesarean section

REACTIONS (2)
  - Drug ineffective [None]
  - Caesarean section [None]

NARRATIVE: CASE EVENT DATE: 20220207
